FAERS Safety Report 23287197 (Version 1)
Quarter: 2023Q4

REPORT INFORMATION
  Report Type: Spontaneous
  Country: US (occurrence: US)
  Receive Date: 20231212
  Receipt Date: 20231212
  Transmission Date: 20240110
  Serious: Yes (Life-Threatening, Hospitalization, Other)
  Sender: FDA-Public Use
  Company Number: US-GLENMARK PHARMACEUTICALS-2023GMK087064

PATIENT

DRUGS (8)
  1. ESOMEPRAZOLE MAGNESIUM [Interacting]
     Active Substance: ESOMEPRAZOLE\ESOMEPRAZOLE MAGNESIUM\ESOMEPRAZOLE MAGNESIUM DIHYDRATE
     Indication: Gastrooesophageal reflux disease
     Dosage: UNK
     Route: 065
  2. PEGASPARGASE [Suspect]
     Active Substance: PEGASPARGASE
     Indication: Central nervous system leukaemia
     Dosage: UNK, PEGASPARAGASE AT 2500 IU/M2/DOSE (WHICH, FOR OUR PATIENT, WAS CAPPED AT 3750 INTERNATIONAL UNIT
     Route: 065
  3. PEGASPARGASE [Suspect]
     Active Substance: PEGASPARGASE
     Indication: B precursor type acute leukaemia
  4. METHOTREXATE [Interacting]
     Active Substance: METHOTREXATE
     Indication: Central nervous system leukaemia
     Dosage: 150 MILLIGRAM PER SQUARE METRE, STARTING AT A DOSE OF 100 MG/M2/DAY AND ESCALATING BY 50 MG/M2 ON DA
     Route: 042
  5. METHOTREXATE [Interacting]
     Active Substance: METHOTREXATE
     Indication: B precursor type acute leukaemia
     Dosage: 100 MILLIGRAM PER SQUARE METRE, CAPIZZI CYCLE, STARTING AT A DOSE OF 100 MG/M2/DAY
     Route: 042
  6. METHOTREXATE [Interacting]
     Active Substance: METHOTREXATE
     Dosage: 250 MILLIGRAM PER SQUARE METRE, STARTING AT A DOSE OF 100 MG/M2/DAY AND ESCALATING BY 50 MG/M2 ON DA
     Route: 042
  7. METHOTREXATE [Interacting]
     Active Substance: METHOTREXATE
     Dosage: 300 MILLIGRAM PER SQUARE METRE, STARTING AT A DOSE OF 100 MG/M2/DAY AND ESCALATING BY 50 MG/M2 ON DA
     Route: 042
  8. METHOTREXATE [Interacting]
     Active Substance: METHOTREXATE
     Dosage: 200 MILLIGRAM PER SQUARE METRE, STARTING AT A DOSE OF 100 MG/M2/DAY AND ESCALATING BY 50 MG/M2 ON DA
     Route: 042

REACTIONS (8)
  - Disease progression [Recovering/Resolving]
  - Multiple organ dysfunction syndrome [Recovering/Resolving]
  - Hepatic steatosis [Recovering/Resolving]
  - Drug interaction [Recovering/Resolving]
  - Chemotherapeutic drug level increased [Recovered/Resolved]
  - Acute kidney injury [Recovering/Resolving]
  - Acute hepatic failure [Recovering/Resolving]
  - Pancreatitis [Recovering/Resolving]
